FAERS Safety Report 10975017 (Version 1)
Quarter: 2015Q1

REPORT INFORMATION
  Report Type: Spontaneous
  Country: US (occurrence: None)
  Receive Date: 20150226
  Receipt Date: 20150226
  Transmission Date: 20150721
  Serious: No
  Sender: FDA-Public Use
  Company Number: TPA2010A03300

PATIENT
  Age: 71 Year
  Sex: Female
  Weight: 86.64 kg

DRUGS (3)
  1. ULORIC [Suspect]
     Active Substance: FEBUXOSTAT
     Indication: GOUT
     Route: 048
     Dates: start: 20100315
  2. LYRICA [Concomitant]
     Active Substance: PREGABALIN
  3. TRAMADOL [Concomitant]
     Active Substance: TRAMADOL

REACTIONS (1)
  - Muscle spasms [None]

NARRATIVE: CASE EVENT DATE: 20100511
